FAERS Safety Report 14666276 (Version 1)
Quarter: 2018Q1

REPORT INFORMATION
  Report Type: Spontaneous
  Country: US (occurrence: US)
  Receive Date: 20180321
  Receipt Date: 20180321
  Transmission Date: 20180509
  Serious: No
  Sender: FDA-Public Use
  Company Number: US-ELI_LILLY_AND_COMPANY-US201601005914

PATIENT
  Age: 62 Year
  Sex: Male

DRUGS (4)
  1. ANDROGEL [Concomitant]
     Active Substance: TESTOSTERONE
     Indication: PRODUCT USED FOR UNKNOWN INDICATION
     Dosage: UNK
     Route: 065
     Dates: start: 2013
  2. CIALIS [Suspect]
     Active Substance: TADALAFIL
     Indication: ERECTILE DYSFUNCTION
     Dosage: 5 MG, PRN
     Dates: start: 2013
  3. CIALIS [Suspect]
     Active Substance: TADALAFIL
     Indication: BENIGN PROSTATIC HYPERPLASIA
     Dosage: 5 MG, QD
     Dates: start: 20160113
  4. CIALIS [Suspect]
     Active Substance: TADALAFIL
     Indication: AUTOMATIC BLADDER
     Dosage: 5 MG, DAILY
     Route: 048

REACTIONS (6)
  - Nasal congestion [Recovered/Resolved]
  - Nasal congestion [Unknown]
  - Paranasal sinus discomfort [Unknown]
  - Sinus pain [Not Recovered/Not Resolved]
  - Swelling [Recovered/Resolved]
  - Flushing [Recovered/Resolved]

NARRATIVE: CASE EVENT DATE: 20160113
